FAERS Safety Report 4278591-3 (Version None)
Quarter: 2004Q1

REPORT INFORMATION
  Report Type: 
  Country: None (occurrence: None)
  Receive Date: 20040122
  Receipt Date: 20040122
  Transmission Date: 20041129
  Serious: Yes (Hospitalization)
  Sender: FDA-Public Use
  Company Number: None

PATIENT
  Age: 39 Year
  Sex: Female
  Weight: 56.246 kg

DRUGS (1)
  1. KETEK [Suspect]
     Dosage: 1 TABLET TWICE DAIL ORAL
     Route: 048
     Dates: start: 20031223, end: 20031224

REACTIONS (3)
  - ARTHRALGIA [None]
  - HYPERSENSITIVITY [None]
  - LYMPHADENOPATHY [None]
